FAERS Safety Report 5201222-2 (Version None)
Quarter: 2007Q1

REPORT INFORMATION
  Report Type: 
  Country: None (occurrence: None)
  Receive Date: 20070103
  Receipt Date: 20061218
  Transmission Date: 20070707
  Serious: Yes (Other)
  Sender: FDA-Public Use
  Company Number: 8020913

PATIENT
  Age: 61 Year
  Sex: Male

DRUGS (13)
  1. PREDNISOLONE [Suspect]
  2. ASPIRIN [Concomitant]
  3. ALENDRONIC ACID [Concomitant]
  4. FORCEVAL [Concomitant]
  5. GLICLAZIDE [Concomitant]
  6. INSULIN [Concomitant]
  7. LOSARTAN POTASSIUM [Concomitant]
  8. METFORMIN [Concomitant]
  9. MYCOPHENOLATE SODIUM [Concomitant]
  10. NYSTATIN [Concomitant]
  11. OMEPRAZOLE [Concomitant]
  12. ROSUVASTATIN [Concomitant]
  13. ZOPICLONE [Concomitant]

REACTIONS (1)
  - CARDIAC PACEMAKER INSERTION [None]
